FAERS Safety Report 11195912 (Version 1)
Quarter: 2015Q2

REPORT INFORMATION
  Report Type: Spontaneous
  Country: US (occurrence: US)
  Receive Date: 20150617
  Receipt Date: 20150617
  Transmission Date: 20150821
  Serious: No
  Sender: FDA-Public Use
  Company Number: US-BRISTOL-MYERS SQUIBB COMPANY-BMS-2015-032198

PATIENT
  Age: 58 Year
  Sex: Female

DRUGS (2)
  1. CETUXIMAB [Suspect]
     Active Substance: CETUXIMAB
     Indication: MALIGNANT ANORECTAL NEOPLASM
     Route: 065
  2. IRINOTECAN [Suspect]
     Active Substance: IRINOTECAN
     Indication: MALIGNANT ANORECTAL NEOPLASM
     Dosage: UNK
     Route: 065

REACTIONS (3)
  - Rash [Unknown]
  - Off label use [Unknown]
  - Diarrhoea [Unknown]
